FAERS Safety Report 7777014-7 (Version None)
Quarter: 2011Q3

REPORT INFORMATION
  Report Type: 
  Country: None (occurrence: None)
  Receive Date: 20110926
  Receipt Date: 20110926
  Transmission Date: 20111222
  Serious: Yes (Hospitalization)
  Sender: FDA-Public Use
  Company Number: None

PATIENT
  Age: 57 Year
  Sex: Male

DRUGS (1)
  1. NADOLOL [Suspect]
     Indication: HYPERTENSION
     Dosage: 40MG
     Route: 048

REACTIONS (3)
  - RASH [None]
  - BLOOD POTASSIUM INCREASED [None]
  - DIARRHOEA [None]
